FAERS Safety Report 8879913 (Version 1)
Quarter: 2012Q4

REPORT INFORMATION
  Report Type: 
  Country: DE (occurrence: DE)
  Receive Date: 20121031
  Receipt Date: 20121031
  Transmission Date: 20130627
  Serious: Yes (Other)
  Sender: FDA-Public Use
  Company Number: DE-MYLANLABS-2012S1021804

PATIENT
  Age: 54 Year
  Sex: Female

DRUGS (3)
  1. CITALOPRAM [Suspect]
     Indication: DEPRESSION
     Route: 065
  2. SEROQUEL [Concomitant]
     Indication: DEPRESSION
     Route: 065
  3. AMITRIPTYLINE [Concomitant]
     Indication: DEPRESSION
     Route: 065

REACTIONS (2)
  - Epistaxis [Recovered/Resolved]
  - Conjunctival haemorrhage [Recovered/Resolved]
